FAERS Safety Report 18296722 (Version 1)
Quarter: 2020Q3

REPORT INFORMATION
  Report Type: Spontaneous
  Country: FR (occurrence: FR)
  Receive Date: 20200922
  Receipt Date: 20200922
  Transmission Date: 20201103
  Serious: Yes (Hospitalization)
  Sender: FDA-Public Use
  Company Number: FR-PFIZER INC-2020360309

PATIENT
  Age: 68 Year
  Sex: Male
  Weight: 74 kg

DRUGS (3)
  1. CUBICIN [Suspect]
     Active Substance: DAPTOMYCIN
     Dosage: UNK
     Route: 042
     Dates: start: 20200430
  2. MERONEM [Suspect]
     Active Substance: MEROPENEM
     Dosage: UNK
     Route: 042
     Dates: start: 20200430
  3. BACTRIM [Suspect]
     Active Substance: SULFAMETHOXAZOLE\TRIMETHOPRIM
     Dosage: UNK
     Route: 048
     Dates: start: 20200430, end: 20200504

REACTIONS (1)
  - Cerebellar syndrome [Recovered/Resolved]

NARRATIVE: CASE EVENT DATE: 20200504
